FAERS Safety Report 17800632 (Version 1)
Quarter: 2020Q2

REPORT INFORMATION
  Report Type: Spontaneous
  Country: CN (occurrence: CN)
  Receive Date: 20200519
  Receipt Date: 20200519
  Transmission Date: 20200714
  Serious: Yes (Hospitalization)
  Sender: FDA-Public Use
  Company Number: CN-BAXTER-2020BAX010149

PATIENT
  Age: 76 Year
  Sex: Female
  Weight: 52 kg

DRUGS (12)
  1. 0.9% SODIUM CHLORIDE INJECTION [Suspect]
     Active Substance: SODIUM CHLORIDE
     Dosage: NS + VINCRISTINE SULFATE, DOSE  RE-INTRODUCED
     Route: 041
  2. ETOPOSIDE. [Suspect]
     Active Substance: ETOPOSIDE
     Dosage: DOSE RE-INTRODUCED
     Route: 041
  3. VINCRISTINE SULFATE. [Suspect]
     Active Substance: VINCRISTINE SULFATE
     Dosage: VINCRISTINE SULFATE + NS, DOSE RE-INTRODUCED
     Route: 041
  4. DOXORUBICIN HYDROCHLORIDE LIPOSOME [Suspect]
     Active Substance: DOXORUBICIN HYDROCHLORIDE
     Indication: LYMPHOMA
     Dosage: DOXORUBICIN HYDROCHLORIDE + 5% GS, SINGLE-DOSE
     Route: 041
     Dates: start: 20200415, end: 20200415
  5. 0.9% SODIUM CHLORIDE INJECTION [Suspect]
     Active Substance: SODIUM CHLORIDE
     Dosage: NS + VINCRISTINE SULFATE, FOR 24 HOUR
     Route: 041
     Dates: start: 20200415, end: 20200418
  6. 0.9% SODIUM CHLORIDE INJECTION [Suspect]
     Active Substance: SODIUM CHLORIDE
     Dosage: NS + ENDOXAN, DOSE RE-INTRODUCED
     Route: 041
  7. 5% GLUCOSE  INJECTION [Suspect]
     Active Substance: DEXTROSE
     Dosage: 5% GS + DOXORUBICIN HYDROCHLORIDE LIPOSOME, DOSE RE-INTRODUCED
     Route: 041
  8. 5% GLUCOSE  INJECTION [Suspect]
     Active Substance: DEXTROSE
     Indication: MEDICATION DILUTION
     Dosage: 5% + DOXORUBICIN HYDROCHLORIDE LIPOSOME,SINGLE-DOSE
     Route: 041
     Dates: start: 20200415, end: 20200415
  9. VINCRISTINE SULFATE. [Suspect]
     Active Substance: VINCRISTINE SULFATE
     Indication: LYMPHOMA
     Dosage: VINCRISTINE SULFATE + NS (500 ML), FOR 24 HOURS
     Route: 041
     Dates: start: 20200415, end: 20200418
  10. 0.9% SODIUM CHLORIDE INJECTION [Suspect]
     Active Substance: SODIUM CHLORIDE
     Indication: MEDICATION DILUTION
     Dosage: NS + ENDOXAN
     Route: 041
     Dates: start: 20200419, end: 20200419
  11. DOXORUBICIN HYDROCHLORIDE LIPOSOME [Suspect]
     Active Substance: DOXORUBICIN HYDROCHLORIDE
     Dosage: DOXORUBICIN HYDROCHLORIDE + 5% GS, DOSE RE-INTRODUCED
     Route: 041
  12. ETOPOSIDE. [Suspect]
     Active Substance: ETOPOSIDE
     Indication: LYMPHOMA
     Route: 041
     Dates: start: 20200415, end: 20200418

REACTIONS (3)
  - Granulocytopenia [Recovered/Resolved]
  - Platelet count decreased [Recovered/Resolved]
  - White blood cell count decreased [Recovered/Resolved]

NARRATIVE: CASE EVENT DATE: 20200424
